FAERS Safety Report 16629666 (Version 8)
Quarter: 2024Q3

REPORT INFORMATION
  Report Type: Spontaneous
  Country: FR (occurrence: FR)
  Receive Date: 20190725
  Receipt Date: 20240906
  Transmission Date: 20241017
  Serious: Yes (Life-Threatening, Hospitalization, Other)
  Sender: GLAXOSMITHKLINE
  Company Number: None

PATIENT

DRUGS (5)
  1. LAMICTAL [Suspect]
     Active Substance: LAMOTRIGINE
     Indication: Depression
     Dosage: 25 MG, QD (1 TABLET PER DAY)
     Route: 048
     Dates: start: 20190515
  2. LAMICTAL [Suspect]
     Active Substance: LAMOTRIGINE
     Dosage: 25 MG, BID
     Dates: start: 20190529, end: 20190531
  3. CYAMEMAZINE [Suspect]
     Active Substance: CYAMEMAZINE
     Indication: Product used for unknown indication
     Dosage: UNK
  4. FLUOXETINE [Concomitant]
     Active Substance: FLUOXETINE HYDROCHLORIDE
     Indication: Product used for unknown indication
     Dosage: 20 MG, QD QSP FOR 2 MONTHS
     Dates: start: 20190419, end: 201905
  5. SERTRALINE [Concomitant]
     Active Substance: SERTRALINE HYDROCHLORIDE
     Indication: Product used for unknown indication
     Dosage: UNK

REACTIONS (75)
  - Toxic epidermal necrolysis [Not Recovered/Not Resolved]
  - Condition aggravated [Unknown]
  - Rash [Unknown]
  - Toxic skin eruption [Unknown]
  - Thrombocytopenia [Unknown]
  - Phimosis [Unknown]
  - Hepatic cytolysis [Unknown]
  - Liver injury [Unknown]
  - Leukopenia [Unknown]
  - Pneumonia mycoplasmal [Recovered/Resolved]
  - Conjunctivitis [Unknown]
  - Blister [Unknown]
  - Genital blister [Unknown]
  - Oral mucosal blistering [Unknown]
  - Swelling face [Unknown]
  - Cheilitis [Unknown]
  - Pyrexia [Unknown]
  - Dehydration [Unknown]
  - Nikolsky^s sign [Unknown]
  - Pain [Unknown]
  - Tachycardia [Unknown]
  - C-reactive protein increased [Unknown]
  - Anxiety [Unknown]
  - Depressed mood [Unknown]
  - Anhedonia [Unknown]
  - Pharyngeal ulceration [Unknown]
  - Depression [Unknown]
  - Mouth ulceration [Unknown]
  - Pruritus [Unknown]
  - Hyperthermia [Unknown]
  - Pyrexia [Unknown]
  - Weight increased [Unknown]
  - Dysphagia [Unknown]
  - Oropharyngeal pain [Unknown]
  - Lymphopenia [Recovering/Resolving]
  - Initial insomnia [Unknown]
  - Pustule [Unknown]
  - Skin exfoliation [Unknown]
  - Rash maculo-papular [Unknown]
  - Skin lesion [Unknown]
  - Drug eruption [Unknown]
  - Blepharitis [Unknown]
  - Vitamin D deficiency [Unknown]
  - Lymphoid tissue hyperplasia [Unknown]
  - Madarosis [Unknown]
  - Paraesthesia [Unknown]
  - Diarrhoea [Unknown]
  - Dysphonia [Unknown]
  - Injury [Unknown]
  - Erythema [Unknown]
  - Skin atrophy [Unknown]
  - Crying [Unknown]
  - Lacrimation increased [Unknown]
  - Oral discomfort [Unknown]
  - Dermatitis [Unknown]
  - Product prescribing issue [Unknown]
  - Nail dystrophy [Unknown]
  - Eyelid irritation [Unknown]
  - Facial pain [Unknown]
  - Genital lesion [Unknown]
  - Oral disorder [Unknown]
  - Ocular discomfort [Unknown]
  - Post-traumatic stress disorder [Unknown]
  - Fatigue [Unknown]
  - Loss of personal independence in daily activities [Unknown]
  - Onychomadesis [Unknown]
  - Rheumatic disorder [Unknown]
  - Eye inflammation [Unknown]
  - Alopecia [Unknown]
  - Scar [Unknown]
  - Eye pain [Unknown]
  - Blepharitis [Unknown]
  - Skin fragility [Unknown]
  - Ear, nose and throat disorder [Unknown]
  - Immune system disorder [Unknown]

NARRATIVE: CASE EVENT DATE: 20190530
